FAERS Safety Report 7473101-1 (Version None)
Quarter: 2011Q2

REPORT INFORMATION
  Report Type: 
  Country: None (occurrence: None)
  Receive Date: 20110511
  Receipt Date: 20110510
  Transmission Date: 20111010
  Serious: Yes (Other)
  Sender: FDA-Public Use
  Company Number: EG-ROCHE-776131

PATIENT
  Sex: Male
  Weight: 80 kg

DRUGS (6)
  1. ACETAMINOPHEN [Concomitant]
     Route: 048
     Dates: start: 20090808, end: 20090818
  2. RIBAVIRIN [Suspect]
     Indication: HEPATITIS C
     Route: 048
     Dates: start: 20090803, end: 20100630
  3. LORATIDINE + PSEUDOEPHEDRINE SULFATE [Concomitant]
     Dosage: DRUG: LORATIDINE
     Route: 048
     Dates: start: 20090808, end: 20090815
  4. INSULIN [Concomitant]
     Indication: DIABETES MELLITUS
     Dosage: DOSE: 60 UNITS
     Route: 058
     Dates: start: 19730101
  5. PEGINTERFERON ALFA-2A [Suspect]
     Indication: HEPATITIS C
     Route: 058
     Dates: start: 20090803, end: 20100630
  6. BISOPROLOL [Concomitant]
     Indication: HYPERTENSION
     Route: 048
     Dates: start: 20020101

REACTIONS (2)
  - BLOOD CREATININE INCREASED [None]
  - BLOOD UREA INCREASED [None]
